FAERS Safety Report 8514945-4 (Version None)
Quarter: 2012Q3

REPORT INFORMATION
  Report Type: 
  Country: None (occurrence: None)
  Receive Date: 20120717
  Receipt Date: 20120716
  Transmission Date: 20120928
  Serious: Yes (Death)
  Sender: FDA-Public Use
  Company Number: FR-B.I. PHARMACEUTICALS,INC./RIDGEFIELD-2011-FF-00874FF

PATIENT
  Sex: Female

DRUGS (7)
  1. PRADAXA [Suspect]
     Dosage: 75 MG
     Route: 048
     Dates: start: 20110706, end: 20110707
  2. ESCITALOPRAM [Concomitant]
     Dosage: 10 MG
  3. LERCANIDIPINE [Concomitant]
     Dosage: 10 MG
  4. PRADAXA [Suspect]
     Dosage: 150 MG
     Route: 048
     Dates: start: 20110708, end: 20110716
  5. PRADAXA [Suspect]
     Indication: THROMBOSIS PROPHYLAXIS
     Dosage: 150 MG
     Route: 048
     Dates: start: 20110629, end: 20110703
  6. SOTALOL HCL [Concomitant]
     Dosage: 80 MG
  7. NEXIUM [Concomitant]

REACTIONS (2)
  - HAEMATOMA [None]
  - SHOCK HAEMORRHAGIC [None]
